FAERS Safety Report 5037557-6 (Version None)
Quarter: 2006Q2

REPORT INFORMATION
  Report Type: 
  Country: None (occurrence: None)
  Receive Date: 20060607
  Receipt Date: 20060426
  Transmission Date: 20061013
  Serious: No
  Sender: FDA-Public Use
  Company Number: 34590

PATIENT
  Sex: Female

DRUGS (1)
  1. NEVANAC [Suspect]
     Dates: start: 20060315

REACTIONS (3)
  - GLARE [None]
  - HEADACHE [None]
  - PHOTOPHOBIA [None]
